FAERS Safety Report 6046766-9 (Version None)
Quarter: 2009Q1

REPORT INFORMATION
  Report Type: 
  Country: None (occurrence: None)
  Receive Date: 20090122
  Receipt Date: 20090112
  Transmission Date: 20090719
  Serious: Yes (Other)
  Sender: FDA-Public Use
  Company Number: ZA-ELI_LILLY_AND_COMPANY-ZA200810003778

PATIENT
  Sex: Male
  Weight: 50 kg

DRUGS (3)
  1. STRATTERA [Suspect]
     Indication: ATTENTION DEFICIT/HYPERACTIVITY DISORDER
     Dosage: UNK, UNKNOWN
     Route: 065
     Dates: start: 20080701, end: 20081027
  2. RISPERDAL [Concomitant]
     Indication: TOURETTE'S DISORDER
  3. DIXARIT [Concomitant]
     Indication: TOURETTE'S DISORDER
     Dosage: UNK, UNKNOWN
     Route: 065

REACTIONS (1)
  - HEPATIC ENZYME INCREASED [None]
